FAERS Safety Report 6368062-2 (Version None)
Quarter: 2009Q3

REPORT INFORMATION
  Report Type: 
  Country: None (occurrence: None)
  Receive Date: 20090922
  Receipt Date: 20090911
  Transmission Date: 20100115
  Serious: Yes (Hospitalization)
  Sender: FDA-Public Use
  Company Number: GB-ROCHE-656291

PATIENT
  Sex: Male
  Weight: 113.3 kg

DRUGS (11)
  1. CAPECITABINE [Suspect]
     Indication: COLON CANCER
     Route: 048
     Dates: start: 20090907, end: 20090910
  2. OMEPRAZOLE [Concomitant]
     Route: 048
  3. GABAPENTIN [Concomitant]
     Route: 048
  4. ASPIRIN [Concomitant]
     Indication: PROPHYLAXIS
     Route: 048
  5. SIMVASTATIN [Concomitant]
     Indication: HYPERCHOLESTEROLAEMIA
     Route: 048
  6. AMITRIPTYLINE [Concomitant]
     Indication: DEPRESSION
     Route: 048
  7. RAMIPRIL [Concomitant]
     Indication: HYPERTENSION
     Route: 048
  8. PARACETAMOL [Concomitant]
     Indication: ANALGESIA
     Route: 048
  9. METFORMIN HCL [Concomitant]
     Route: 048
  10. METOCLOPRAMIDE [Concomitant]
     Indication: ANTIEMETIC SUPPORTIVE CARE
     Route: 048
  11. INSULIN [Concomitant]
     Dosage: DOSAGE REGIMEN: 30 UNITS ONCE DAILY
     Route: 058

REACTIONS (2)
  - GASTROINTESTINAL STOMA COMPLICATION [None]
  - URINARY RETENTION [None]
